FAERS Safety Report 9783470 (Version 1)
Quarter: 2013Q4

REPORT INFORMATION
  Report Type: Spontaneous
  Country: FR (occurrence: FR)
  Receive Date: 20131226
  Receipt Date: 20131226
  Transmission Date: 20140711
  Serious: Yes (Death, Hospitalization, Other)
  Sender: FDA-Public Use
  Company Number: US-ASTRAZENECA-2013SE93278

PATIENT
  Age: 214 Day
  Sex: Female

DRUGS (19)
  1. SYNAGIS [Suspect]
     Indication: PROPHYLAXIS
     Route: 030
     Dates: start: 20131015
  2. SYNAGIS [Suspect]
     Indication: PROPHYLAXIS
     Route: 030
     Dates: start: 20131115
  3. VAXIGRIP [Suspect]
     Indication: ANTIVIRAL PROPHYLAXIS
     Route: 065
     Dates: start: 20131030, end: 20131030
  4. REVATIO [Concomitant]
     Indication: PULMONARY ARTERIAL HYPERTENSION
     Dates: start: 20130419
  5. REVATIO [Concomitant]
     Indication: PULMONARY ARTERIAL HYPERTENSION
     Dates: start: 20130613
  6. REVATIO [Concomitant]
     Indication: PULMONARY ARTERIAL HYPERTENSION
  7. TREPROSTINIL [Concomitant]
     Indication: PRODUCT USED FOR UNKNOWN INDICATION
     Dosage: 10 THEN 40 NG/KG/MN
     Route: 058
  8. CELESTENE [Concomitant]
     Indication: PRODUCT USED FOR UNKNOWN INDICATION
     Dates: start: 20130506, end: 20130509
  9. CELESTENE [Concomitant]
     Indication: PRODUCT USED FOR UNKNOWN INDICATION
     Dates: start: 20130614, end: 20130706
  10. MORPHINE [Concomitant]
     Indication: PRODUCT USED FOR UNKNOWN INDICATION
     Route: 048
     Dates: start: 20130709, end: 20130718
  11. MORPHINE [Concomitant]
     Indication: PRODUCT USED FOR UNKNOWN INDICATION
     Dosage: PROGRESSIVE DECREASE OF MORPHINE (DECREASE OF 0.15 MG/KG/D)
     Dates: start: 20130718
  12. LASILIX [Concomitant]
     Indication: PRODUCT USED FOR UNKNOWN INDICATION
  13. SPIRONOLACTONE [Concomitant]
     Indication: PRODUCT USED FOR UNKNOWN INDICATION
  14. INEXIUM [Concomitant]
     Indication: PRODUCT USED FOR UNKNOWN INDICATION
  15. ATARAX [Concomitant]
     Indication: PRODUCT USED FOR UNKNOWN INDICATION
  16. DEBRIDAT [Concomitant]
     Indication: PRODUCT USED FOR UNKNOWN INDICATION
  17. UVESTEROL VITAMINE A D E C [Concomitant]
     Indication: PRODUCT USED FOR UNKNOWN INDICATION
  18. DIAZEPAM [Concomitant]
     Indication: PRODUCT USED FOR UNKNOWN INDICATION
  19. POLYSILANE [Concomitant]
     Indication: PRODUCT USED FOR UNKNOWN INDICATION

REACTIONS (4)
  - Hyperpyrexia [Fatal]
  - Hepatocellular injury [Fatal]
  - Rhabdomyolysis [Fatal]
  - Pyrexia [Recovering/Resolving]
